FAERS Safety Report 4736497-7 (Version None)
Quarter: 2005Q3

REPORT INFORMATION
  Report Type: 
  Country: None (occurrence: None)
  Receive Date: 20050804
  Receipt Date: 20050804
  Transmission Date: 20060218
  Serious: Yes (Other)
  Sender: FDA-Public Use
  Company Number: None

PATIENT
  Age: 61 Year
  Sex: Female
  Weight: 63.5036 kg

DRUGS (1)
  1. AGGRENOX [Suspect]
     Indication: CEREBROVASCULAR ACCIDENT
     Dosage: ONE CAP TWICE DAILY
     Dates: start: 20050723

REACTIONS (5)
  - CHEST DISCOMFORT [None]
  - DYSPEPSIA [None]
  - FEELING ABNORMAL [None]
  - HEADACHE [None]
  - VOMITING [None]
